FAERS Safety Report 8731732 (Version 2)
Quarter: 2012Q4

REPORT INFORMATION
  Report Type: Report from Study
  Country: US (occurrence: US)
  Receive Date: 20120820
  Receipt Date: 20120831
  Transmission Date: 20130627
  Serious: Yes (Hospitalization)
  Sender: FDA-Public Use
  Company Number: US-JNJFOC-20120806861

PATIENT
  Age: 4 Year
  Sex: Male
  Weight: 17.2 kg

DRUGS (9)
  1. REMICADE [Suspect]
     Indication: COLITIS ULCERATIVE
     Route: 042
     Dates: start: 20120226
  2. REMICADE [Suspect]
     Indication: COLITIS ULCERATIVE
     Route: 042
     Dates: start: 20120222
  3. REMICADE [Suspect]
     Indication: COLITIS ULCERATIVE
     Route: 042
     Dates: start: 20111209
  4. AMOXICILLIN [Suspect]
     Indication: EAR INFECTION
     Dates: start: 2012
  5. ALBUTEROL [Concomitant]
  6. PROBIOTICS [Concomitant]
  7. UNSPECIFIED EYE MEDICATION [Concomitant]
  8. LANSOPRAZOLE [Concomitant]
  9. MULTIVITAMINS [Concomitant]

REACTIONS (1)
  - Colitis ulcerative [Recovered/Resolved]
